FAERS Safety Report 8081584-1 (Version None)
Quarter: 2012Q1

REPORT INFORMATION
  Report Type: 
  Country: None (occurrence: None)
  Receive Date: 20120130
  Receipt Date: 20120119
  Transmission Date: 20120608
  Serious: Yes (Other)
  Sender: FDA-Public Use
  Company Number: US-ROCHE-1033802

PATIENT
  Sex: Female

DRUGS (8)
  1. XOLAIR [Suspect]
     Indication: PRODUCT USED FOR UNKNOWN INDICATION
  2. OXYGEN [Concomitant]
  3. TOBI [Suspect]
     Indication: BRONCHIECTASIS
     Dates: start: 20111201
  4. SPIRIVA [Concomitant]
  5. TOBI [Suspect]
     Dates: start: 20111230
  6. MUCINEX [Concomitant]
  7. ALBUTEROL [Concomitant]
  8. ADVAIR DISKUS 100/50 [Concomitant]

REACTIONS (4)
  - FEELING COLD [None]
  - DYSPNOEA [None]
  - BRONCHITIS [None]
  - COUGH [None]
